FAERS Safety Report 8851128 (Version 2)
Quarter: 2012Q4

REPORT INFORMATION
  Report Type: 
  Country: JP (occurrence: JP)
  Receive Date: 20121020
  Receipt Date: 20121105
  Transmission Date: 20130627
  Serious: Yes (Other)
  Sender: FDA-Public Use
  Company Number: JP-AMGEN-JPNSP2012066479

PATIENT
  Age: 61 Year
  Sex: Female

DRUGS (3)
  1. ARANESP [Suspect]
     Indication: NEPHROGENIC ANAEMIA
     Dosage: 60 mug, qwk
     Route: 040
     Dates: start: 20120703, end: 20120913
  2. EPOETIN ALFA [Suspect]
     Indication: NEPHROGENIC ANAEMIA
     Dosage: 7500 IU, 3 times/wk
     Route: 040
     Dates: start: 201206, end: 201207
  3. EPOGIN S [Suspect]
     Indication: NEPHROGENIC ANAEMIA
     Dosage: 3000 IU, 3 times/wk
     Route: 040
     Dates: start: 20120918

REACTIONS (1)
  - Aplasia pure red cell [Recovering/Resolving]
